FAERS Safety Report 9541841 (Version 2)
Quarter: 2013Q4

REPORT INFORMATION
  Report Type: Spontaneous
  Country: US (occurrence: US)
  Receive Date: 20130923
  Receipt Date: 20131125
  Transmission Date: 20140711
  Serious: Yes (Death)
  Sender: FDA-Public Use
  Company Number: PHEH2013US019836

PATIENT
  Sex: Male

DRUGS (2)
  1. TOBI [Suspect]
     Indication: INFECTIVE PULMONARY EXACERBATION OF CYSTIC FIBROSIS
     Dosage: 170 MG, BID
     Dates: start: 20080723, end: 20130904
  2. TOBI [Suspect]
     Indication: PNEUMONIA BACTERIAL

REACTIONS (1)
  - Lung disorder [Fatal]
